FAERS Safety Report 5514526-0 (Version None)
Quarter: 2007Q4

REPORT INFORMATION
  Report Type: 
  Country: None (occurrence: None)
  Receive Date: 20071113
  Receipt Date: 20071108
  Transmission Date: 20080405
  Serious: Yes (Hospitalization)
  Sender: FDA-Public Use
  Company Number: DE-BRISTOL-MYERS SQUIBB COMPANY-13976527

PATIENT
  Age: 37 Year
  Sex: Female

DRUGS (5)
  1. TAXOL [Suspect]
     Indication: BREAST CANCER
     Dosage: 1 DOSAGE FORM =396 (UNIT NOT SPECIFIED). FREQUENCY = EVERY 14 DAYS(CYCLICAL)
     Route: 042
     Dates: start: 20070118, end: 20070215
  2. CYCLOPHOSPHAMIDE [Suspect]
     Indication: BREAST CANCER
     Dosage: 1 DOSAGE FORM=3520(UNIT NOT SPECIFIED; FREQUENCY = EVERY 14 DAYS(CYCLICAL)
     Route: 042
     Dates: start: 20070301, end: 20070329
  3. EPIRUBICIN [Suspect]
     Indication: BREAST CANCER
     Dosage: 1 DOSAGE FORM = 264(UNIT NOT SPECIFIED); FREQUENCY = EVERY 14 DAYS(CYCLICAL)
     Route: 042
     Dates: start: 20061207, end: 20070103
  4. NEORECORMON [Concomitant]
     Dosage: FREQUENCY EVERY 7 DAYS.
     Route: 058
     Dates: start: 20061207, end: 20070404
  5. NEULASTA [Concomitant]
     Dosage: FREQUENCY EVERY 14 DAYS
     Dates: start: 20061208, end: 20070330

REACTIONS (1)
  - ATRIAL THROMBOSIS [None]
